FAERS Safety Report 11589087 (Version 1)
Quarter: 2015Q4

REPORT INFORMATION
  Report Type: Spontaneous
  Country: US (occurrence: US)
  Receive Date: 20151002
  Receipt Date: 20151002
  Transmission Date: 20160304
  Serious: No
  Sender: FDA-Public Use
  Company Number: US-PFIZER INC-2015326216

PATIENT
  Sex: Female

DRUGS (1)
  1. TOVIAZ [Suspect]
     Active Substance: FESOTERODINE FUMARATE
     Indication: INCONTINENCE
     Dosage: UNK

REACTIONS (4)
  - Vomiting [Unknown]
  - Nausea [Not Recovered/Not Resolved]
  - Cough [Unknown]
  - Diarrhoea [Recovered/Resolved]
